FAERS Safety Report 10486356 (Version 1)
Quarter: 2014Q4

REPORT INFORMATION
  Report Type: Report from Study
  Country: BR (occurrence: BR)
  Receive Date: 20141001
  Receipt Date: 20141001
  Transmission Date: 20150528
  Serious: Yes (Hospitalization, Other)
  Sender: FDA-Public Use
  Company Number: PHHY2014BR127170

PATIENT
  Sex: Female
  Weight: 120 kg

DRUGS (5)
  1. SANDOSTATIN LAR DEPOT [Suspect]
     Active Substance: OCTREOTIDE ACETATE
     Indication: CUSHING^S SYNDROME
     Dosage: 30 MG, QMO
  2. KETOCONAZOLE. [Concomitant]
     Active Substance: KETOCONAZOLE
  3. CABERGOLINE. [Concomitant]
     Active Substance: CABERGOLINE
  4. SANDOSTATIN LAR DEPOT [Suspect]
     Active Substance: OCTREOTIDE ACETATE
     Indication: OFF LABEL USE
  5. VITAMIN D [Concomitant]
     Active Substance: CHOLECALCIFEROL

REACTIONS (5)
  - Peripheral swelling [Unknown]
  - Osteoporosis [Unknown]
  - Mobility decreased [Not Recovered/Not Resolved]
  - Cardiac disorder [Unknown]
  - Localised infection [Not Recovered/Not Resolved]
